FAERS Safety Report 10405498 (Version 2)
Quarter: 2014Q4

REPORT INFORMATION
  Report Type: Spontaneous
  Country: BE (occurrence: BE)
  Receive Date: 20140825
  Receipt Date: 20141114
  Transmission Date: 20150528
  Serious: Yes (Other)
  Sender: FDA-Public Use
  Company Number: BE-ROCHE-1453436

PATIENT
  Age: 74 Year
  Sex: Female

DRUGS (3)
  1. LUCENTIS [Suspect]
     Active Substance: RANIBIZUMAB
     Dosage: IN RIGHT EYE,
     Route: 050
     Dates: start: 20130328
  2. LUCENTIS [Suspect]
     Active Substance: RANIBIZUMAB
     Indication: AGE-RELATED MACULAR DEGENERATION
     Dosage: LEFT EYE
     Route: 050
     Dates: start: 20100512
  3. LUCENTIS [Suspect]
     Active Substance: RANIBIZUMAB
     Route: 050
     Dates: start: 201406

REACTIONS (2)
  - Deep vein thrombosis [Recovered/Resolved with Sequelae]
  - Tenosynovitis stenosans [Not Recovered/Not Resolved]

NARRATIVE: CASE EVENT DATE: 201406
